FAERS Safety Report 9540181 (Version 1)
Quarter: 2013Q2

REPORT INFORMATION
  Report Type: Spontaneous
  Country: US (occurrence: None)
  Receive Date: 20130503
  Receipt Date: 20130503
  Transmission Date: 20140414
  Serious: No
  Sender: FDA-Public Use
  Company Number: 1000042818

PATIENT
  Sex: Male

DRUGS (1)
  1. DALIRESP (ROFLUMILAST) (TABLETS) [Suspect]
     Indication: CHRONIC OBSTRUCTIVE PULMONARY DISEASE
     Route: 048
     Dates: start: 20130213

REACTIONS (2)
  - Local swelling [None]
  - Neck pain [None]
